FAERS Safety Report 11893230 (Version 1)
Quarter: 2016Q1

REPORT INFORMATION
  Report Type: Spontaneous
  Country: RS (occurrence: RS)
  Receive Date: 20160106
  Receipt Date: 20160106
  Transmission Date: 20160526
  Serious: Yes (Hospitalization)
  Sender: FDA-Public Use
  Company Number: RS-MYLANLABS-2015M1048028

PATIENT

DRUGS (2)
  1. HALOPERIDOL. [Suspect]
     Active Substance: HALOPERIDOL
     Indication: ACUTE PSYCHOSIS
     Dosage: 30MG TOTAL DAILY DOSE
     Route: 051
  2. DIAZEPAM. [Suspect]
     Active Substance: DIAZEPAM
     Indication: ACUTE PSYCHOSIS
     Dosage: 50MG/DAY
     Route: 065

REACTIONS (3)
  - Negativism [Unknown]
  - Neuroleptic malignant syndrome [Recovered/Resolved]
  - Mutism [Unknown]
